FAERS Safety Report 7734512-X (Version None)
Quarter: 2011Q3

REPORT INFORMATION
  Report Type: 
  Country: None (occurrence: None)
  Receive Date: 20110907
  Receipt Date: 20110308
  Transmission Date: 20111222
  Serious: Yes (Death, Hospitalization)
  Sender: FDA-Public Use
  Company Number: US-GLAXOSMITHKLINE-A0918103A

PATIENT
  Age: 66 Year
  Sex: Male

DRUGS (1)
  1. AVANDIA [Suspect]
     Indication: DIABETES MELLITUS
     Dosage: 4MG TWICE PER DAY
     Route: 048

REACTIONS (11)
  - DEATH [None]
  - NEUROPATHY PERIPHERAL [None]
  - PAIN IN EXTREMITY [None]
  - NIGHT SWEATS [None]
  - MYOCARDIAL INFARCTION [None]
  - ARTHRALGIA [None]
  - VISION BLURRED [None]
  - ARTERIAL STENOSIS LIMB [None]
  - MUSCULAR WEAKNESS [None]
  - TREMOR [None]
  - CONVULSION [None]
